FAERS Safety Report 6155187-X (Version None)
Quarter: 2009Q2

REPORT INFORMATION
  Report Type: 
  Country: None (occurrence: None)
  Receive Date: 20090415
  Receipt Date: 20090409
  Transmission Date: 20091009
  Serious: Yes (Other)
  Sender: FDA-Public Use
  Company Number: US-CELGENEUS-163-20785-09041155

PATIENT
  Sex: Male

DRUGS (2)
  1. THALOMID [Suspect]
     Indication: MULTIPLE MYELOMA
     Route: 048
     Dates: start: 20090301
  2. THALOMID [Suspect]
     Route: 048
     Dates: start: 20090201, end: 20090301

REACTIONS (5)
  - BRAIN OEDEMA [None]
  - HEARING IMPAIRED [None]
  - OSTEOLYSIS [None]
  - SPEECH DISORDER [None]
  - VISUAL IMPAIRMENT [None]
